FAERS Safety Report 24383630 (Version 1)
Quarter: 2024Q3

REPORT INFORMATION
  Report Type: Spontaneous
  Country: US (occurrence: None)
  Receive Date: 20240930
  Receipt Date: 20240930
  Transmission Date: 20241016
  Serious: Yes (Disabling)
  Sender: Public
  Company Number: None

PATIENT
  Age: 34 Year
  Sex: Female

DRUGS (1)
  1. KYLEENA [Suspect]
     Active Substance: LEVONORGESTREL
     Indication: Contraception
     Dates: start: 20210324, end: 20230322

REACTIONS (3)
  - Deafness unilateral [None]
  - Complication associated with device [None]
  - Deafness unilateral [None]

NARRATIVE: CASE EVENT DATE: 20211108
